FAERS Safety Report 4969945-8 (Version None)
Quarter: 2006Q1

REPORT INFORMATION
  Report Type: 
  Country: None (occurrence: None)
  Receive Date: 20060202
  Receipt Date: 20050404
  Transmission Date: 20060701
  Serious: Yes (Other)
  Sender: FDA-Public Use
  Company Number: PHEH2005US03941

PATIENT
  Age: 40 Year
  Sex: Female

DRUGS (8)
  1. RITALIN LA [Suspect]
     Indication: ATTENTION DEFICIT/HYPERACTIVITY DISORDER
     Dosage: 40 MG QD, ORAL
     Route: 048
     Dates: start: 20050201
  2. RITALIN LA [Suspect]
     Indication: PSYCHOMOTOR HYPERACTIVITY
     Dosage: 40 MG QD, ORAL
     Route: 048
     Dates: start: 20050201
  3. RITALIN [Suspect]
     Indication: ATTENTION DEFICIT/HYPERACTIVITY DISORDER
     Dates: start: 20040101, end: 20040101
  4. RITALIN [Suspect]
     Indication: PSYCHOMOTOR HYPERACTIVITY
     Dates: start: 20040101, end: 20040101
  5. KLONOPIN [Concomitant]
  6. LITHIUM (LITHIUM) [Concomitant]
  7. XANAX [Concomitant]
  8. AMBIEN [Concomitant]

REACTIONS (4)
  - CRYING [None]
  - DEPRESSED MOOD [None]
  - DRUG WITHDRAWAL HEADACHE [None]
  - EUPHORIC MOOD [None]
